FAERS Safety Report 20908527 (Version 1)
Quarter: 2022Q2

REPORT INFORMATION
  Report Type: Spontaneous
  Country: ES (occurrence: ES)
  Receive Date: 20220603
  Receipt Date: 20220603
  Transmission Date: 20220721
  Serious: Yes (Other)
  Sender: FDA-Public Use
  Company Number: ES-AEMPS-1186637

PATIENT
  Age: 59 Year
  Sex: Male

DRUGS (4)
  1. VORICONAZOLE [Suspect]
     Active Substance: VORICONAZOLE
     Indication: Pneumonia
     Dosage: 500 MILLIGRAM, TWO TIMES A DAY
     Route: 042
     Dates: start: 20220207, end: 20220223
  2. CLOXACILLIN [Suspect]
     Active Substance: CLOXACILLIN
     Indication: Pneumonia
     Dosage: 2 GRAM, ONCE A DAY
     Route: 042
     Dates: start: 20220208, end: 20220222
  3. ERYTHROMYCIN [Suspect]
     Active Substance: ERYTHROMYCIN
     Indication: Pneumonia
     Dosage: 250 MILLIGRAM, 3 TIMES A DAY
     Route: 042
     Dates: start: 20220208, end: 20220213
  4. METHYLPREDNISOLONE [Concomitant]
     Active Substance: METHYLPREDNISOLONE
     Indication: Product used for unknown indication
     Dosage: 90 MILLIGRAM, TWO TIMES A DAY
     Route: 042
     Dates: start: 20220220, end: 20220221

REACTIONS (1)
  - Mixed liver injury [Recovered/Resolved]

NARRATIVE: CASE EVENT DATE: 20220223
